FAERS Safety Report 25333582 (Version 2)
Quarter: 2025Q3

REPORT INFORMATION
  Report Type: Spontaneous
  Country: US (occurrence: US)
  Receive Date: 20250520
  Receipt Date: 20250813
  Transmission Date: 20251020
  Serious: No
  Sender: STALLERGENES
  Company Number: US-STALCOR-2025-AER-00785

PATIENT
  Age: 13 Year
  Sex: Male

DRUGS (6)
  1. PALFORZIA [Suspect]
     Active Substance: PEANUT
     Indication: Food allergy
     Dosage: LVL 7 AT 120MG -DISPENSED ON 22-FEB-2025
     Route: 048
     Dates: start: 202502
  2. PALFORZIA [Suspect]
     Active Substance: PEANUT
     Dosage: LVL 7 AT 120MG -REPEATED AT PRESCRIBERS^ CLINIC ON 25-FEB-2025.
     Route: 048
     Dates: start: 20250225
  3. ACETAMINOPHEN [Concomitant]
     Active Substance: ACETAMINOPHEN
     Indication: Product used for unknown indication
  4. ALBUTEROL SULFATE [Concomitant]
     Active Substance: ALBUTEROL SULFATE
     Indication: Product used for unknown indication
  5. EMPAGLIFLOZIN\LINAGLIPTIN [Concomitant]
     Active Substance: EMPAGLIFLOZIN\LINAGLIPTIN
     Indication: Product used for unknown indication
  6. EPINEPHRINE [Concomitant]
     Active Substance: EPINEPHRINE
     Indication: Prophylaxis

REACTIONS (2)
  - Salivary hypersecretion [Recovered/Resolved]
  - Nausea [Recovered/Resolved]

NARRATIVE: CASE EVENT DATE: 20250222
